FAERS Safety Report 7559161-8 (Version None)
Quarter: 2011Q2

REPORT INFORMATION
  Report Type: 
  Country: None (occurrence: None)
  Receive Date: 20110621
  Receipt Date: 20110616
  Transmission Date: 20111010
  Serious: Yes (Other)
  Sender: FDA-Public Use
  Company Number: DE-PFIZER INC-2011132380

PATIENT
  Sex: Female

DRUGS (2)
  1. ASPIRIN [Concomitant]
     Indication: LIPOPROTEIN (A) INCREASED
     Dosage: 100 MG PER DAY
  2. CELEBREX [Suspect]
     Indication: LIPOPROTEIN (A) INCREASED
     Dosage: 100 MG, 2X/DAY

REACTIONS (3)
  - ACCIDENT [None]
  - NASAL CONGESTION [None]
  - SWELLING FACE [None]
